FAERS Safety Report 4505481-0 (Version None)
Quarter: 2004Q4

REPORT INFORMATION
  Report Type: 
  Country: None (occurrence: None)
  Receive Date: 20041118
  Receipt Date: 20041110
  Transmission Date: 20050328
  Serious: Yes (Other)
  Sender: FDA-Public Use
  Company Number: 003577

PATIENT
  Sex: Female

DRUGS (4)
  1. MEDROXYPROGESTERONE ACETATE [Suspect]
     Dates: start: 19920101, end: 19980701
  2. PREMPRO [Suspect]
     Dosage: 1.25 MG
     Dates: start: 19961201, end: 19980701
  3. PREMPRO [Suspect]
     Dosage: 1.25 MG
     Dates: start: 19920101
  4. PROVERA [Suspect]
     Dates: start: 19920101, end: 19980701

REACTIONS (3)
  - BREAST CANCER [None]
  - OESTROGEN RECEPTOR ASSAY POSITIVE [None]
  - PROGESTERONE RECEPTOR ASSAY POSITIVE [None]
